FAERS Safety Report 5303543-1 (Version None)
Quarter: 2007Q2

REPORT INFORMATION
  Report Type: 
  Country: None (occurrence: None)
  Receive Date: 20070420
  Receipt Date: 20070413
  Transmission Date: 20071010
  Serious: Yes (Hospitalization)
  Sender: FDA-Public Use
  Company Number: SI-ROXANE LABORATORIES, INC-2007-BP-05140RO

PATIENT
  Age: 31 Year
  Sex: Female

DRUGS (2)
  1. METHADONE HCL [Suspect]
     Indication: DRUG WITHDRAWAL MAINTENANCE THERAPY
     Route: 048
  2. METHADONE HCL [Suspect]
     Indication: DRUG ABUSER
     Route: 042

REACTIONS (8)
  - BLINDNESS UNILATERAL [None]
  - CATARACT [None]
  - EYE PAIN [None]
  - IRIDOCYCLITIS [None]
  - LENS DISORDER [None]
  - TOOTHACHE [None]
  - UVEITIS [None]
  - VISUAL ACUITY REDUCED [None]
